FAERS Safety Report 15474279 (Version 3)
Quarter: 2019Q2

REPORT INFORMATION
  Report Type: Spontaneous
  Country: CA (occurrence: CA)
  Receive Date: 20181008
  Receipt Date: 20190517
  Transmission Date: 20190711
  Serious: Yes (Death, Other)
  Sender: FDA-Public Use
  Company Number: CA-PFIZER INC-2017183216

PATIENT
  Age: 39 Year
  Sex: Female

DRUGS (16)
  1. IBRANCE [Suspect]
     Active Substance: PALBOCICLIB
     Dosage: 100 MG, 1X/DAY (CONTINUOUSLY)
     Route: 048
  2. LETROZOLE. [Concomitant]
     Active Substance: LETROZOLE
     Dosage: UNK
     Dates: start: 201707
  3. SHARK LIVER OIL [Concomitant]
     Active Substance: SHARK LIVER OIL
     Dosage: UNK
  4. ASTRAGALUS GUMMIFER [Concomitant]
     Active Substance: UNSPECIFIED INGREDIENT
     Dosage: UNK
  5. BETA GLUCAN [Concomitant]
     Active Substance: BETA GLUCAN
     Dosage: UNK
  6. QUERCETIN [Concomitant]
     Active Substance: QUERCETIN
     Dosage: UNK
  7. IBRANCE [Suspect]
     Active Substance: PALBOCICLIB
     Indication: BREAST CANCER METASTATIC
     Dosage: 125 MG, CYCLIC (ONCE DAILY, FOR 21 DAYS AND 7 DAYS OFF)
     Route: 048
     Dates: start: 20170410, end: 2017
  8. HAWTHORN [Concomitant]
     Active Substance: CRATAEGUS LAEVIGATA FRUIT
     Dosage: UNK
  9. VITAMIN D [Concomitant]
     Active Substance: VITAMIN D NOS
     Dosage: UNK
  10. MILK THISTLE [Concomitant]
     Active Substance: DIETARY SUPPLEMENT\HERBALS\MILK THISTLE
     Dosage: UNK
  11. MULTIVITAMIN [Concomitant]
     Active Substance: VITAMINS
     Dosage: UNK
  12. VITAMIN B [Concomitant]
     Active Substance: VITAMIN B
     Dosage: UNK
  13. ZOLADEX [Concomitant]
     Active Substance: GOSERELIN ACETATE
     Dosage: UNK
  14. IBRANCE [Suspect]
     Active Substance: PALBOCICLIB
     Dosage: 100 MG, CYCLIC (ONCE DAILY, FOR 21 DAYS AND 7 DAYS OFF)
     Route: 048
     Dates: start: 2017
  15. IRON [Concomitant]
     Active Substance: IRON
     Dosage: UNK
  16. APRICOT KERNEL OIL [Concomitant]
     Dosage: UNK

REACTIONS (7)
  - Blood count abnormal [Unknown]
  - Nasopharyngitis [Unknown]
  - Upper respiratory tract infection [Unknown]
  - Liver disorder [Unknown]
  - Off label use [Unknown]
  - Product use issue [Unknown]
  - Neoplasm progression [Fatal]
